FAERS Safety Report 9646558 (Version 2)
Quarter: 2013Q4

REPORT INFORMATION
  Report Type: Report from Study
  Country: US (occurrence: US)
  Receive Date: 20131025
  Receipt Date: 20131025
  Transmission Date: 20140711
  Serious: Yes (Other)
  Sender: FDA-Public Use
  Company Number: US-ABBVIE-13P-163-1056444-00

PATIENT
  Age: 66 Year
  Sex: Male
  Weight: 84.44 kg

DRUGS (1)
  1. HUMIRA [Suspect]
     Indication: RHEUMATOID ARTHRITIS
     Dates: start: 20071108, end: 20130613

REACTIONS (1)
  - Coronary artery occlusion [Recovering/Resolving]
